FAERS Safety Report 8620769-X (Version None)
Quarter: 2012Q3

REPORT INFORMATION
  Report Type: 
  Country: None (occurrence: None)
  Receive Date: 20120824
  Receipt Date: 20120810
  Transmission Date: 20120928
  Serious: Yes (Hospitalization)
  Sender: FDA-Public Use
  Company Number: US-ROCHE-1072927

PATIENT
  Sex: Female
  Weight: 65.83 kg

DRUGS (11)
  1. CYMBALTA [Concomitant]
     Indication: DEPRESSION
     Route: 048
     Dates: start: 20110517
  2. ZOFRAN [Concomitant]
     Indication: NAUSEA
     Dosage: QID AS REQUIRED
     Route: 048
     Dates: start: 20120625
  3. RIBAVIRIN [Suspect]
  4. TELAPREVIR [Suspect]
     Indication: HEPATITIS C
     Dosage: 375 MG 2 TABLETS TID
     Route: 048
     Dates: start: 20120430, end: 20120727
  5. VITAMIN D [Concomitant]
     Dosage: 1000 UNITS
     Route: 048
  6. PEGASYS [Suspect]
     Indication: HEPATITIS C
     Route: 058
     Dates: start: 20120430
  7. LISINOPRIL [Concomitant]
     Indication: HYPERTENSION
     Route: 048
     Dates: start: 20120530
  8. OMEPRAZOLE [Concomitant]
     Indication: GASTROOESOPHAGEAL REFLUX DISEASE
     Route: 048
     Dates: start: 20100831
  9. RIBAVIRIN [Suspect]
     Indication: HEPATITIS C
     Dosage: DIVIDED DOSES
     Dates: start: 20120430
  10. LASIX [Concomitant]
     Indication: MENIERE'S DISEASE
     Route: 048
     Dates: start: 20091210
  11. TRAZODONE HYDROCHLORIDE [Concomitant]
     Indication: INSOMNIA
     Dosage: 50 MG 1/2- 2 TABLET QHS AS REQUIRED
     Route: 048
     Dates: start: 20120313

REACTIONS (14)
  - NAUSEA [None]
  - RED BLOOD CELL COUNT DECREASED [None]
  - BLOOD POTASSIUM DECREASED [None]
  - INSOMNIA [None]
  - HEADACHE [None]
  - HAEMATOCHEZIA [None]
  - TREMOR [None]
  - DYSGEUSIA [None]
  - FATIGUE [None]
  - HAEMORRHOIDS [None]
  - MALAISE [None]
  - RASH [None]
  - LOSS OF CONSCIOUSNESS [None]
  - DIARRHOEA [None]
